FAERS Safety Report 4928019-2 (Version None)
Quarter: 2006Q1

REPORT INFORMATION
  Report Type: 
  Country: None (occurrence: None)
  Receive Date: 20060228
  Receipt Date: 20060216
  Transmission Date: 20060701
  Serious: Yes (Hospitalization, Other)
  Sender: FDA-Public Use
  Company Number: ZA-NOVOPROD-250915

PATIENT
  Age: 45 Year
  Sex: Male
  Weight: 80 kg

DRUGS (2)
  1. INSULIN DETEMIR PENFILL [Suspect]
     Indication: DIABETES MELLITUS INSULIN-DEPENDENT
     Dosage: 38 U, QD
     Route: 058
     Dates: start: 20040902
  2. NOVORAPID [Suspect]
     Dosage: 36 IU, QD
     Route: 058
     Dates: start: 20040902

REACTIONS (3)
  - FALL [None]
  - HUMERUS FRACTURE [None]
  - HYPOGLYCAEMIC COMA [None]
